FAERS Safety Report 6339032-5 (Version None)
Quarter: 2009Q3

REPORT INFORMATION
  Report Type: 
  Country: None (occurrence: None)
  Receive Date: 20090831
  Receipt Date: 20090726
  Transmission Date: 20100115
  Serious: No
  Sender: FDA-Public Use
  Company Number: MC200900268

PATIENT
  Age: 76 Year
  Sex: Female

DRUGS (1)
  1. CLEVIPREX [Suspect]
     Indication: BLOOD PRESSURE MANAGEMENT
     Dosage: INTRAVENOUS
     Route: 042
     Dates: start: 20090724, end: 20090724

REACTIONS (1)
  - NAUSEA [None]
